FAERS Safety Report 25790985 (Version 1)
Quarter: 2025Q3

REPORT INFORMATION
  Report Type: Spontaneous
  Country: US (occurrence: None)
  Receive Date: 20250910
  Receipt Date: 20250910
  Transmission Date: 20251021
  Serious: No
  Sender: FDA-CTU
  Company Number: None

PATIENT

DRUGS (1)
  1. NUCALA [Suspect]
     Active Substance: MEPOLIZUMAB

REACTIONS (5)
  - Pneumonia [None]
  - Renal failure [None]
  - Blood pressure abnormal [None]
  - Aspiration [None]
  - Pleural effusion [None]
